FAERS Safety Report 20729701 (Version 1)
Quarter: 2022Q2

REPORT INFORMATION
  Report Type: Spontaneous
  Country: US (occurrence: US)
  Receive Date: 20220420
  Receipt Date: 20220420
  Transmission Date: 20220720
  Serious: Yes (Other)
  Sender: FDA-Public Use
  Company Number: US-BRISTOL-MYERS SQUIBB COMPANY-2022-021526

PATIENT
  Age: 78 Year
  Sex: Female

DRUGS (1)
  1. REVLIMID [Suspect]
     Active Substance: LENALIDOMIDE
     Indication: Plasma cell myeloma
     Dosage: DAILY FOR 12 DAYS ON AND 7 DAYS OFF.
     Route: 048
     Dates: start: 20160823

REACTIONS (3)
  - Hepatic enzyme increased [Unknown]
  - Hepatic steatosis [Unknown]
  - Hepatic cirrhosis [Unknown]
